FAERS Safety Report 4500471-6 (Version None)
Quarter: 2004Q3

REPORT INFORMATION
  Report Type: 
  Country: None (occurrence: None)
  Receive Date: 20040928
  Receipt Date: 20040803
  Transmission Date: 20050211
  Serious: No
  Sender: FDA-Public Use
  Company Number: 04P-163-0269324-00

PATIENT
  Age: 61 Year
  Sex: Female

DRUGS (6)
  1. HUMIRA [Suspect]
     Indication: RHEUMATOID ARTHRITIS
     Dosage: 40 MG, 1V IN 2 WK, SUBCUTANEOUS
     Route: 058
     Dates: start: 20030721, end: 20040601
  2. HUMIRA [Suspect]
     Indication: RHEUMATOID ARTHRITIS
     Dosage: 40 MG, 1V IN 2 WK, SUBCUTANEOUS
     Route: 058
     Dates: start: 20040601
  3. THIAMAZLE [Concomitant]
  4. HYDROCHLOROQUINE PHOSPHATE [Concomitant]
  5. LOTESINS [Concomitant]
  6. LEFLUNOMIDE [Concomitant]

REACTIONS (1)
  - DRUG INEFFECTIVE [None]
